FAERS Safety Report 20787082 (Version 1)
Quarter: 2022Q2

REPORT INFORMATION
  Report Type: Spontaneous
  Country: DE (occurrence: None)
  Receive Date: 20220505
  Receipt Date: 20220505
  Transmission Date: 20220721
  Serious: Yes (Other)
  Sender: FDA-Public Use
  Company Number: DE-ROCHE-3084077

PATIENT
  Sex: Female
  Weight: 38 kg

DRUGS (4)
  1. MABTHERA [Suspect]
     Active Substance: RITUXIMAB
     Indication: Diffuse large B-cell lymphoma
     Dosage: 1ST LINE RITUXIMAB 9 CYCLES THEN 8 CYCLES OF CHOP AND 2 CYCLE OF METHOTREXATE
     Route: 065
     Dates: end: 201811
  2. MABTHERA [Suspect]
     Active Substance: RITUXIMAB
     Dosage: 2ND LINE, R-ASHAOX 2 CYCLES
     Route: 065
     Dates: end: 201811
  3. CYCLOPHOSPHAMIDE\DOXORUBICIN\PREDNISONE\VINCRISTINE [Suspect]
     Active Substance: CYCLOPHOSPHAMIDE\DOXORUBICIN\PREDNISONE\VINCRISTINE
     Indication: Diffuse large B-cell lymphoma
     Dosage: 1ST LINE RITUXIMAB 9 CYCLES THEN 8 CYCLES OF CHOP AND 2 CYCLE OF METHOTREXATE
     Route: 065
     Dates: start: 201806, end: 201811
  4. METHOTREXATE SODIUM [Suspect]
     Active Substance: METHOTREXATE SODIUM
     Indication: Diffuse large B-cell lymphoma
     Dosage: 1ST LINE RITUXIMAB 9 CYCLES THEN 8 CYCLES OF CHOP AND 2 CYCLE OF METHOTREXATE
     Route: 065
     Dates: start: 201806, end: 201811

REACTIONS (1)
  - Malignant neoplasm progression [Unknown]
